FAERS Safety Report 5350488-7 (Version None)
Quarter: 2007Q2

REPORT INFORMATION
  Report Type: 
  Country: None (occurrence: None)
  Receive Date: 20070608
  Receipt Date: 20070605
  Transmission Date: 20071010
  Serious: Yes (Other)
  Sender: FDA-Public Use
  Company Number: US-BAYER-200710826BCC

PATIENT
  Sex: Female

DRUGS (1)
  1. PHILLIPS MILK OF MAGNESIA CHERRY [Suspect]
     Indication: DRUG USE FOR UNKNOWN INDICATION
     Route: 048
     Dates: start: 19710101

REACTIONS (1)
  - DIABETES MELLITUS [None]
